FAERS Safety Report 12327167 (Version 1)
Quarter: 2016Q2

REPORT INFORMATION
  Report Type: Spontaneous
  Country: US (occurrence: None)
  Receive Date: 20160502
  Receipt Date: 20160502
  Transmission Date: 20160815
  Serious: Yes (Disabling)
  Sender: FDA-Public Use
  Company Number: None

PATIENT
  Age: 14 Year
  Sex: Female
  Weight: 49.9 kg

DRUGS (5)
  1. NATURE^S PLUS VIT C [Concomitant]
  2. RAINBOW LIGHT [Concomitant]
  3. VITAMIN D3 [Concomitant]
     Active Substance: CHOLECALCIFEROL
  4. DELTASONE [Suspect]
     Active Substance: PREDNISONE
     Indication: FOOD ALLERGY
     Route: 048
     Dates: start: 20160218, end: 20160221
  5. KIDS ONE FOOD BASED MULTIVITAMINS [Concomitant]

REACTIONS (10)
  - Nausea [None]
  - Pain [None]
  - Eye pain [None]
  - Dyspnoea [None]
  - Oropharyngeal pain [None]
  - Heart rate increased [None]
  - Headache [None]
  - Fatigue [None]
  - Abdominal pain upper [None]
  - Impaired work ability [None]

NARRATIVE: CASE EVENT DATE: 20160221
